FAERS Safety Report 10373880 (Version 1)
Quarter: 2014Q1

REPORT INFORMATION
  Report Type: Spontaneous
  Country: US (occurrence: None)
  Receive Date: 20140306
  Receipt Date: 20140306
  Transmission Date: 20141002
  Serious: Yes (Life-Threatening)
  Sender: FDA-Public Use
  Company Number: 163-21880-13106028

PATIENT
  Age: 61 Year
  Sex: Male

DRUGS (7)
  1. REVLIMID (LENALIDOMIDE) (CAPSULES) [Suspect]
     Indication: PLASMA CELL MYELOMA
     Dosage: 21 IN 28 D
     Route: 048
     Dates: start: 201309, end: 20131030
  2. VELCADE (BORTEZOMIB) [Concomitant]
  3. DEAMETHASONE (DEXAMETHASONE ) (4 MILLIGRAM, TABLET) [Concomitant]
  4. ASA (ACETYLSALICYLIC ACID) [Concomitant]
  5. ZPACK (AZITHROMYCIN) [Concomitant]
  6. ZOLPIDEM (ZOLPIDEM) (TABLETS) [Concomitant]
  7. LOSARTAN-HYDROCHLOROTHIAZIDE (HYZAAR)(TABLETS) [Concomitant]

REACTIONS (1)
  - Deep vein thrombosis [None]
